FAERS Safety Report 15289783 (Version 2)
Quarter: 2018Q4

REPORT INFORMATION
  Report Type: Spontaneous
  Country: JP (occurrence: JP)
  Receive Date: 20180817
  Receipt Date: 20181109
  Transmission Date: 20190204
  Serious: Yes (Death, Hospitalization)
  Sender: FDA-Public Use
  Company Number: JP-EISAI MEDICAL RESEARCH-EC-2018-044204

PATIENT

DRUGS (2)
  1. LENVIMA [Suspect]
     Active Substance: LENVATINIB
     Indication: HEPATOCELLULAR CARCINOMA
     Dosage: UNKNOWN
     Route: 048
     Dates: start: 201808, end: 201808
  2. OPIUM ALKALOID PREPARATIONS [Suspect]
     Active Substance: OPIUM
     Indication: CANCER PAIN
     Dosage: UNKNOWN

REACTIONS (2)
  - Intra-abdominal pressure increased [Unknown]
  - Enterocolitis [Unknown]

NARRATIVE: CASE EVENT DATE: 201808
